FAERS Safety Report 10846813 (Version 2)
Quarter: 2015Q3

REPORT INFORMATION
  Report Type: Spontaneous
  Country: US (occurrence: US)
  Receive Date: 20150220
  Receipt Date: 20150721
  Transmission Date: 20151125
  Serious: Yes (Other)
  Sender: FDA-Public Use
  Company Number: US-GLAXOSMITHKLINE-US2015023124

PATIENT
  Age: 61 Year
  Sex: Female
  Weight: 107.3 kg

DRUGS (3)
  1. TANZEUM [Suspect]
     Active Substance: ALBIGLUTIDE
     Indication: DIABETES MELLITUS
     Dosage: 30 MG, WE
     Route: 058
     Dates: start: 20150123, end: 20150217
  2. METFORMIN [Concomitant]
     Active Substance: METFORMIN HYDROCHLORIDE
     Dosage: UNK
     Dates: start: 20141014
  3. FUROSEMIDE. [Concomitant]
     Active Substance: FUROSEMIDE
     Dosage: UNK
     Dates: start: 201404

REACTIONS (10)
  - Blood alkaline phosphatase abnormal [Unknown]
  - Blood calcium abnormal [Unknown]
  - Vomiting [Recovered/Resolved]
  - Nausea [Unknown]
  - Pancreatitis acute [Recovering/Resolving]
  - Back pain [Unknown]
  - Lipase abnormal [Unknown]
  - Abdominal pain [Recovered/Resolved]
  - Diarrhoea [Recovered/Resolved]
  - Blood creatinine abnormal [Unknown]

NARRATIVE: CASE EVENT DATE: 2015
